FAERS Safety Report 19067271 (Version 1)
Quarter: 2021Q1

REPORT INFORMATION
  Report Type: Spontaneous
  Country: US (occurrence: US)
  Receive Date: 20210329
  Receipt Date: 20210329
  Transmission Date: 20210420
  Serious: Yes (Hospitalization, Other)
  Sender: FDA-Public Use
  Company Number: US-AMGEN-USASP2021045740

PATIENT
  Sex: Male

DRUGS (5)
  1. XANAX [Concomitant]
     Active Substance: ALPRAZOLAM
     Indication: ANXIETY
  2. HUMIRA [Suspect]
     Active Substance: ADALIMUMAB
     Indication: PRODUCT USED FOR UNKNOWN INDICATION
     Route: 058
  3. ORENCIA [Concomitant]
     Active Substance: ABATACEPT
  4. ENBREL [Suspect]
     Active Substance: ETANERCEPT
     Indication: PRODUCT USED FOR UNKNOWN INDICATION
     Dosage: UNK
     Route: 065
  5. SIMPONI [Concomitant]
     Active Substance: GOLIMUMAB

REACTIONS (18)
  - Eating disorder [Unknown]
  - Emotional distress [Not Recovered/Not Resolved]
  - Diabetic coma [Unknown]
  - Joint injury [Recovered/Resolved]
  - Joint noise [Recovered/Resolved]
  - Illness [Recovered/Resolved]
  - Groin pain [Unknown]
  - Rheumatoid arthritis [Unknown]
  - Pneumonia [Recovered/Resolved]
  - Systemic lupus erythematosus [Unknown]
  - Memory impairment [Not Recovered/Not Resolved]
  - Diabetes mellitus [Unknown]
  - Joint lock [Recovered/Resolved]
  - Drug ineffective [Recovered/Resolved]
  - Stress [Not Recovered/Not Resolved]
  - Pain [Recovered/Resolved]
  - Coronary arterial stent insertion [Recovered/Resolved]
  - Myocardial infarction [Unknown]
